FAERS Safety Report 5215628-9 (Version None)
Quarter: 2007Q1

REPORT INFORMATION
  Report Type: 
  Country: None (occurrence: None)
  Receive Date: 20070123
  Receipt Date: 20070118
  Transmission Date: 20070707
  Serious: Yes (Hospitalization)
  Sender: FDA-Public Use
  Company Number: 2007CG00057

PATIENT
  Age: 88 Year
  Sex: Male
  Weight: 72 kg

DRUGS (7)
  1. ZESTRIL [Suspect]
     Route: 048
  2. MONICOR [Interacting]
     Route: 048
  3. MOLSIDOMINE [Interacting]
     Route: 048
  4. SOTALOL HCL [Interacting]
     Route: 048
     Dates: end: 20061101
  5. SOTALOL HCL [Interacting]
     Route: 048
     Dates: start: 20061101
  6. CIPRALAN [Concomitant]
     Route: 048
  7. PREVISCAN [Concomitant]
     Route: 048

REACTIONS (4)
  - ASTHENIA [None]
  - DRUG INTERACTION [None]
  - MALAISE [None]
  - ORTHOSTATIC HYPOTENSION [None]
